FAERS Safety Report 6165830-7 (Version None)
Quarter: 2009Q2

REPORT INFORMATION
  Report Type: 
  Country: None (occurrence: None)
  Receive Date: 20090423
  Receipt Date: 20090414
  Transmission Date: 20091009
  Serious: Yes (Other)
  Sender: FDA-Public Use
  Company Number: FR-BAXTER-2009BH006019

PATIENT
  Age: 73 Year
  Sex: Female
  Weight: 54 kg

DRUGS (8)
  1. EXTRANEAL [Suspect]
     Indication: NEPHROANGIOSCLEROSIS
     Route: 033
     Dates: start: 20040301
  2. NUTRINEAL PD4 UNKNOWN BAG [Suspect]
     Indication: NEPHROANGIOSCLEROSIS
     Route: 033
     Dates: start: 20040301
  3. PHYSIOSOL IN PLASTIC CONTAINER [Suspect]
     Indication: NEPHROANGIOSCLEROSIS
     Route: 033
     Dates: start: 20040301
  4. OMEPRAZOLE [Concomitant]
     Indication: DRUG USE FOR UNKNOWN INDICATION
     Route: 065
  5. COZAAR [Concomitant]
     Indication: DRUG USE FOR UNKNOWN INDICATION
     Route: 065
  6. TENORMIN [Concomitant]
     Indication: DRUG USE FOR UNKNOWN INDICATION
     Route: 065
  7. AMLODIPINE BESYLATE [Concomitant]
     Indication: DRUG USE FOR UNKNOWN INDICATION
     Route: 065
  8. MIMPARA [Concomitant]
     Indication: DRUG USE FOR UNKNOWN INDICATION
     Route: 065

REACTIONS (2)
  - HAEMODIALYSIS [None]
  - PERITONITIS SCLEROSING [None]
